FAERS Safety Report 8816961 (Version 1)
Quarter: 2012Q4

REPORT INFORMATION
  Report Type: Spontaneous
  Country: JP (occurrence: None)
  Receive Date: 20121002
  Receipt Date: 20121002
  Transmission Date: 20130627
  Serious: Yes (Other)
  Sender: FDA-Public Use
  Company Number: DSA_59867_2012

PATIENT

DRUGS (3)
  1. FLUOROURACIL (FLUOROURACIL) [Suspect]
     Indication: ANAL CANCER
     Route: 042
  2. MITOMYCIN [Suspect]
     Indication: ANAL CANCER
  3. THERAPEUTIC RADIOPHARMACEUTICALS (THERAPEUTIC RADIOPHARMACEUTICALS) [Suspect]
     Indication: ANAL CANCER
     Dosage: (1.8 GY daily)

REACTIONS (1)
  - Febrile neutropenia [None]
